FAERS Safety Report 8775997 (Version 6)
Quarter: 2014Q3

REPORT INFORMATION
  Report Type: Spontaneous
  Country: US (occurrence: US)
  Receive Date: 20120910
  Receipt Date: 20140822
  Transmission Date: 20150326
  Serious: Yes (Hospitalization, Other)
  Sender: FDA-Public Use
  Company Number: US-009507513-1209USA001494

PATIENT
  Sex: Female
  Weight: 54.42 kg

DRUGS (4)
  1. IBUPROFEN. [Concomitant]
     Active Substance: IBUPROFEN
     Dosage: UNK
     Dates: start: 200803, end: 200809
  2. YAZ [Concomitant]
     Active Substance: DROSPIRENONE\ETHINYL ESTRADIOL
     Dosage: UNK, QD
     Dates: start: 200803, end: 20080904
  3. CALCIUM (UNSPECIFIED) [Concomitant]
     Active Substance: CALCIUM
  4. NUVARING [Suspect]
     Active Substance: ETHINYL ESTRADIOL\ETONOGESTREL
     Indication: CONTRACEPTION
     Dosage: UNK
     Dates: start: 20080904, end: 20080911

REACTIONS (22)
  - Adverse drug reaction [Unknown]
  - Acne [Unknown]
  - Coordination abnormal [Unknown]
  - Anxiety [Unknown]
  - Transient ischaemic attack [Unknown]
  - Depression [Unknown]
  - Cerebrovascular accident [Recovered/Resolved]
  - Pain in extremity [Unknown]
  - Menorrhagia [Unknown]
  - Embolic stroke [Unknown]
  - Attention deficit/hyperactivity disorder [Unknown]
  - Headache [Unknown]
  - Road traffic accident [Unknown]
  - Tinnitus [Unknown]
  - Embolism arterial [Unknown]
  - Fatigue [Unknown]
  - Peripheral swelling [Unknown]
  - Endometrial ablation [Unknown]
  - Confusional state [Unknown]
  - Anxiety [Unknown]
  - Trichotillomania [Unknown]
  - Migraine [Unknown]

NARRATIVE: CASE EVENT DATE: 2008
